FAERS Safety Report 11169719 (Version 1)
Quarter: 2015Q2

REPORT INFORMATION
  Report Type: Spontaneous
  Country: ES (occurrence: ES)
  Receive Date: 20150606
  Receipt Date: 20150606
  Transmission Date: 20150821
  Serious: Yes (Other)
  Sender: FDA-Public Use
  Company Number: PHHY2015ES067628

PATIENT
  Age: 83 Year
  Sex: Female

DRUGS (10)
  1. LEPONEX [Suspect]
     Active Substance: CLOZAPINE
     Indication: PRODUCT USED FOR UNKNOWN INDICATION
     Dosage: UNK
     Route: 048
     Dates: start: 20150317, end: 20150331
  2. MIRTAZAPINE. [Concomitant]
     Active Substance: MIRTAZAPINE
     Indication: PRODUCT USED FOR UNKNOWN INDICATION
     Dosage: 15 MG, UNK
     Route: 048
  3. RIVASTIGMINA [Concomitant]
     Indication: COGNITIVE DISORDER
     Route: 062
  4. AMILORIDA [Concomitant]
     Indication: HYPERTENSION
     Route: 048
  5. LEPONEX [Suspect]
     Active Substance: CLOZAPINE
     Dosage: 50 MG, BID
     Route: 048
     Dates: start: 20150331, end: 20150428
  6. ENALAPRIL [Concomitant]
     Active Substance: ENALAPRIL
     Indication: COGNITIVE DISORDER
     Dosage: 20 MG, UNK
     Route: 048
  7. OLANZAPINA [Concomitant]
     Active Substance: OLANZAPINE
     Indication: PRODUCT USED FOR UNKNOWN INDICATION
     Dosage: 2.5 MG, UNK
     Route: 048
  8. FLUOXETINE [Concomitant]
     Active Substance: FLUOXETINE\FLUOXETINE HYDROCHLORIDE
     Indication: COGNITIVE DISORDER
     Dosage: 10 MG, UNK
     Route: 048
  9. ADIRO [Concomitant]
     Active Substance: ASPIRIN
     Indication: PRODUCT USED FOR UNKNOWN INDICATION
     Dosage: 100 MG, UNK
     Route: 048
  10. NOCTAMID [Concomitant]
     Active Substance: LORMETAZEPAM
     Indication: COGNITIVE DISORDER
     Dosage: 34 DROPS
     Route: 048
     Dates: end: 20150331

REACTIONS (1)
  - Anaemia [Unknown]

NARRATIVE: CASE EVENT DATE: 20150428
